FAERS Safety Report 21527473 (Version 1)
Quarter: 2022Q4

REPORT INFORMATION
  Report Type: Report from Study
  Country: US (occurrence: US)
  Receive Date: 20221031
  Receipt Date: 20221031
  Transmission Date: 20230112
  Serious: No
  Sender: FDA-Public Use
  Company Number: US-ABBVIE-22K-163-4479585-00

PATIENT
  Sex: Female

DRUGS (1)
  1. HUMIRA [Suspect]
     Active Substance: ADALIMUMAB
     Indication: Rheumatoid arthritis
     Dosage: CITRATE FREE
     Route: 058

REACTIONS (5)
  - Fatigue [Recovered/Resolved]
  - Injection site pruritus [Recovered/Resolved with Sequelae]
  - Injection site erythema [Recovered/Resolved]
  - Injection site irritation [Recovered/Resolved]
  - Injection site inflammation [Unknown]
